FAERS Safety Report 21090898 (Version 1)
Quarter: 2022Q3

REPORT INFORMATION
  Report Type: Spontaneous
  Country: FR (occurrence: FR)
  Receive Date: 20220716
  Receipt Date: 20220716
  Transmission Date: 20221027
  Serious: Yes (Other)
  Sender: FDA-Public Use
  Company Number: None

PATIENT
  Age: 72 Year
  Sex: Female
  Weight: 74 kg

DRUGS (12)
  1. DOXORUBICIN [Suspect]
     Active Substance: DOXORUBICIN
     Indication: B-cell lymphoma
     Dosage: UNIT DOSE: 90 MG, FREQUENCY TIME- 1 CYCLICAL, DURATION-112 DAYS
     Dates: start: 20210526, end: 20210915
  2. VINCRISTINE SULFATE [Suspect]
     Active Substance: VINCRISTINE SULFATE
     Indication: B-cell lymphoma
     Dosage: UNIT DOSE: 2 MG, FREQUENCY TIME- 1 CYCLICAL, DURATION-112 DAYS
     Dates: start: 20210526, end: 20210915
  3. VALACYCLOVIR HYDROCHLORIDE [Suspect]
     Active Substance: VALACYCLOVIR HYDROCHLORIDE
     Indication: Prophylaxis
     Dosage: UNIT DOSE: 500 MG, FREQUENCY TIME- 1 DAY
     Dates: start: 202105
  4. ACETAMINOPHEN [Suspect]
     Active Substance: ACETAMINOPHEN
     Indication: Premedication
     Dosage: UNIT DOSE:1 G, FREQUENCY TIME- 1 CYCLICAL, DURATION-112 DAYS
     Route: 065
     Dates: start: 20210526, end: 20210915
  5. ALLOPURINOL [Suspect]
     Active Substance: ALLOPURINOL
     Indication: Product used for unknown indication
     Dosage: UNIT DOSE: 300 MG, FREQUENCY TIME- 1 DAY
     Dates: start: 202105
  6. MABTHERA [Suspect]
     Active Substance: RITUXIMAB
     Indication: B-cell lymphoma
     Dosage: SOLUTION FOR SUBCUTANEOUS INJECTION, FORM STRENGTH: 1400 MG, UNIT DOSE: 1 DF, FREQUENCY TIME-1 CYCLI
     Dates: start: 20210526, end: 20210915
  7. CYCLOPHOSPHAMIDE [Suspect]
     Active Substance: CYCLOPHOSPHAMIDE
     Indication: B-cell lymphoma
     Dosage: UNIT DOSE: 1020 MG, FREQUENCY TIME- 1 CYCLICAL, DURATION-112 DAYS
     Dates: start: 20210526, end: 20210915
  8. ONDANSETRON [Suspect]
     Active Substance: ONDANSETRON
     Indication: Premedication
     Dosage: UNIT DOSE: 8 MG, FREQUENCY TIME- 1 CYCLICAL, DURATION-112 DAYS
     Dates: start: 20210526, end: 20210915
  9. METHYLPREDNISOLONE [Suspect]
     Active Substance: METHYLPREDNISOLONE
     Indication: Premedication
     Dosage: UNIT DOSE: 120 MG, FREQUENCY TIME- 1 CYCLICAL, DURATION-112 DAYS
     Dates: start: 20210526, end: 20210915
  10. PREDNISONE [Suspect]
     Active Substance: PREDNISONE
     Indication: B-cell lymphoma
     Dosage: DURATION-4 MONTHS
     Dates: start: 20210527, end: 202109
  11. BACTRIM [Suspect]
     Active Substance: SULFAMETHOXAZOLE\TRIMETHOPRIM
     Indication: Prophylaxis
     Dosage: UNIT DOSE: 3 DF, FREQUENCY TIME- 1 WEEK
     Dates: start: 202105
  12. POLARAMINE [Suspect]
     Active Substance: DEXCHLORPHENIRAMINE MALEATE
     Indication: Premedication
     Dosage: UNIT DOSE: 5 MG, FREQUENCY TIME- 1 CYCLICAL, DURATION-112 DAYS
     Dates: start: 20210526, end: 20210915

REACTIONS (1)
  - Organising pneumonia [Not Recovered/Not Resolved]

NARRATIVE: CASE EVENT DATE: 20210918
